FAERS Safety Report 7024721-X (Version None)
Quarter: 2010Q4

REPORT INFORMATION
  Report Type: 
  Country: None (occurrence: None)
  Receive Date: 20101001
  Receipt Date: 20100928
  Transmission Date: 20110411
  Serious: Yes (Hospitalization)
  Sender: FDA-Public Use
  Company Number: US-GILEAD-2010-0031164

PATIENT
  Sex: Female
  Weight: 105.33 kg

DRUGS (18)
  1. LETAIRIS [Suspect]
     Indication: PULMONARY ARTERIAL HYPERTENSION
     Route: 048
     Dates: start: 20080610
  2. OXYGEN [Concomitant]
  3. LASIX [Concomitant]
  4. SPIRONOLACTONE [Concomitant]
  5. COUMADIN [Concomitant]
  6. ADVAIR DISKUS 100/50 [Concomitant]
  7. SAPHRIS [Concomitant]
  8. MIDODRINE HYDROCHLORIDE [Concomitant]
  9. CYMBALTA [Concomitant]
  10. ATIVAN [Concomitant]
  11. DILAUDID [Concomitant]
  12. VICODIN [Concomitant]
  13. NEXIUM [Concomitant]
  14. ZEGERID [Concomitant]
  15. FLUCONAZOLE [Concomitant]
  16. ROBAXIN [Concomitant]
  17. TYLENOL (CAPLET) [Concomitant]
  18. SLOW FE [Concomitant]

REACTIONS (2)
  - ARTHROPATHY [None]
  - ILEUS [None]
